FAERS Safety Report 6426254-8 (Version None)
Quarter: 2009Q4

REPORT INFORMATION
  Report Type: 
  Country: None (occurrence: None)
  Receive Date: 20091104
  Receipt Date: 20091020
  Transmission Date: 20100525
  Serious: Yes (Hospitalization)
  Sender: FDA-Public Use
  Company Number: PT-BRISTOL-MYERS SQUIBB COMPANY-14830384

PATIENT
  Age: 47 Year
  Sex: Male

DRUGS (2)
  1. EFAVIRENZ [Suspect]
     Indication: ANTIRETROVIRAL THERAPY
     Dates: start: 20030201, end: 20051101
  2. TENOFOVIR DISOPROXIL FUMARATE [Concomitant]
     Indication: ANTIRETROVIRAL THERAPY
     Dosage: MAY02
     Dates: start: 20020501

REACTIONS (7)
  - ABDOMINAL DISTENSION [None]
  - CHEST PAIN [None]
  - CORONARY ARTERY DISEASE [None]
  - HYPERHIDROSIS [None]
  - LIPIDS ABNORMAL [None]
  - MYOCARDIAL INFARCTION [None]
  - PALPITATIONS [None]
